FAERS Safety Report 5146458-4 (Version None)
Quarter: 2006Q4

REPORT INFORMATION
  Report Type: 
  Country: None (occurrence: None)
  Receive Date: 20061102
  Receipt Date: 20061025
  Transmission Date: 20070319
  Serious: Yes (Hospitalization)
  Sender: FDA-Public Use
  Company Number: 163-21880-06080539

PATIENT
  Age: 82 Year
  Sex: Male

DRUGS (4)
  1. REVLIMID [Suspect]
     Indication: MULTIPLE MYELOMA
     Dosage: 25 MG, 1 IN 1 D, ORAL
     Route: 048
     Dates: start: 20060824, end: 20060905
  2. REVLIMID [Suspect]
  3. REVLIMID [Suspect]
  4. BACTRIM [Suspect]
     Indication: DRUG USE FOR UNKNOWN INDICATION

REACTIONS (6)
  - ANGIONEUROTIC OEDEMA [None]
  - FATIGUE [None]
  - PRURITUS [None]
  - RASH [None]
  - RASH MACULAR [None]
  - UNEVALUABLE EVENT [None]
